FAERS Safety Report 18585811 (Version 1)
Quarter: 2020Q4

REPORT INFORMATION
  Report Type: Spontaneous
  Country: US (occurrence: US)
  Receive Date: 20201206
  Receipt Date: 20201206
  Transmission Date: 20210114
  Serious: Yes (Other)
  Sender: FDA-Public Use
  Company Number: None

PATIENT
  Age: 51 Year
  Sex: Female
  Weight: 63 kg

DRUGS (14)
  1. LOW DOSE NALTREXONE [Concomitant]
     Active Substance: NALTREXONE
  2. FISH OIL [Concomitant]
     Active Substance: FISH OIL
  3. VITAMIN B12 [Concomitant]
     Active Substance: CYANOCOBALAMIN
  4. PREDNISONE. [Concomitant]
     Active Substance: PREDNISONE
  5. AZATHIOPRINE 50MG [Suspect]
     Active Substance: AZATHIOPRINE
     Indication: SYSTEMIC LUPUS ERYTHEMATOSUS
     Dosage: ?          QUANTITY:1 TABLET(S);?
     Route: 048
     Dates: start: 20201202, end: 20201204
  6. BIOTIN [Concomitant]
     Active Substance: BIOTIN
  7. VYVANSE [Concomitant]
     Active Substance: LISDEXAMFETAMINE DIMESYLATE
  8. MAGNESIUM [Concomitant]
     Active Substance: MAGNESIUM
  9. ESCITALOPRAM [Concomitant]
     Active Substance: ESCITALOPRAM OXALATE
  10. VITAMIN C [Concomitant]
     Active Substance: ASCORBIC ACID
  11. VITAMIN D3 [Concomitant]
     Active Substance: CHOLECALCIFEROL
  12. ZINC. [Concomitant]
     Active Substance: ZINC
  13. BUPROPION. [Concomitant]
     Active Substance: BUPROPION
  14. PLAQUENIL [Concomitant]
     Active Substance: HYDROXYCHLOROQUINE SULFATE

REACTIONS (10)
  - Malaise [None]
  - Asthenia [None]
  - Nausea [None]
  - Tachycardia [None]
  - Pyrexia [None]
  - Myalgia [None]
  - Headache [None]
  - Fibrin D dimer increased [None]
  - Pain in extremity [None]
  - Arthralgia [None]

NARRATIVE: CASE EVENT DATE: 20201203
